FAERS Safety Report 16917493 (Version 1)
Quarter: 2019Q4

REPORT INFORMATION
  Report Type: Spontaneous
  Country: DK (occurrence: DK)
  Receive Date: 20191015
  Receipt Date: 20191015
  Transmission Date: 20200122
  Serious: Yes (Other)
  Sender: FDA-Public Use
  Company Number: DK-GLAXOSMITHKLINE-DK2019EME165204

PATIENT

DRUGS (1)
  1. NICOTINELL [Suspect]
     Active Substance: NICOTINE
     Indication: THERAPY CESSATION
     Dosage: UNK

REACTIONS (3)
  - Application site scar [Unknown]
  - Skin disorder [Unknown]
  - Skin reaction [Unknown]
